FAERS Safety Report 9725305 (Version 1)
Quarter: 2013Q4

REPORT INFORMATION
  Report Type: Spontaneous
  Country: US (occurrence: None)
  Receive Date: 20131202
  Receipt Date: 20131202
  Transmission Date: 20140711
  Serious: No
  Sender: FDA-Public Use
  Company Number: None

PATIENT
  Age: 83 Year
  Sex: Male
  Weight: 63.5 kg

DRUGS (1)
  1. DOXYCYCLINE HYCLATE [Suspect]
     Indication: EYE INFECTION
     Dosage: 1 CAPSULE 2-2 WKS, 1 THEREAFTER TAKEN BY MOUTH
     Dates: start: 20131105, end: 20131115

REACTIONS (2)
  - Dyspnoea [None]
  - Abdominal pain upper [None]
